FAERS Safety Report 14362453 (Version 1)
Quarter: 2018Q1

REPORT INFORMATION
  Report Type: Spontaneous
  Country: IT (occurrence: IT)
  Receive Date: 20180108
  Receipt Date: 20180108
  Transmission Date: 20180509
  Serious: Yes (Hospitalization)
  Sender: FDA-Public Use
  Company Number: IT-CIPLA LTD.-2017IT30804

PATIENT

DRUGS (2)
  1. TOPIRAMATE. [Suspect]
     Active Substance: TOPIRAMATE
     Dosage: 200 MG, IN TOTAL
     Route: 048
     Dates: start: 20170221
  2. RIVOTRIL [Suspect]
     Active Substance: CLONAZEPAM
     Dosage: 70 GTT, IN TOTAL
     Route: 048
     Dates: start: 20170221

REACTIONS (2)
  - Sopor [Recovered/Resolved]
  - Suicide attempt [Recovered/Resolved]

NARRATIVE: CASE EVENT DATE: 20170221
